FAERS Safety Report 11932229 (Version 13)
Quarter: 2018Q1

REPORT INFORMATION
  Report Type: Spontaneous
  Country: NL (occurrence: NL)
  Receive Date: 20160120
  Receipt Date: 20180323
  Transmission Date: 20180508
  Serious: Yes (Hospitalization, Other)
  Sender: FDA-Public Use
  Company Number: NL-ASTELLAS-2016US001878

PATIENT
  Age: 90 Year
  Sex: Male

DRUGS (14)
  1. VESICARE [Suspect]
     Active Substance: SOLIFENACIN SUCCINATE
     Route: 065
     Dates: start: 20161124
  2. HYDROCHLOROTHIAZIDE AND LISINOPRIL [Concomitant]
     Active Substance: HYDROCHLOROTHIAZIDE\LISINOPRIL
     Indication: CARDIAC DISORDER
     Dosage: 12.5 MG, 1 TABLET ONCE
     Route: 065
  3. HYDROCHLOROTHIAZIDE AND LISINOPRIL [Concomitant]
     Active Substance: HYDROCHLOROTHIAZIDE\LISINOPRIL
     Indication: ANGIOPATHY
  4. BETMIGA [Suspect]
     Active Substance: MIRABEGRON
     Route: 065
     Dates: start: 20161011
  5. VESICARE [Suspect]
     Active Substance: SOLIFENACIN SUCCINATE
     Route: 065
     Dates: end: 20161111
  6. VESICARE [Suspect]
     Active Substance: SOLIFENACIN SUCCINATE
     Route: 065
     Dates: start: 201803
  7. PRAVASTATIN SODIUM. [Concomitant]
     Active Substance: PRAVASTATIN SODIUM
     Indication: BLOOD CHOLESTEROL
     Route: 065
  8. OMEPRAZOLE. [Concomitant]
     Active Substance: OMEPRAZOLE
     Indication: ABDOMINAL PAIN UPPER
     Route: 065
  9. AMLODIPINE [Concomitant]
     Active Substance: AMLODIPINE BESYLATE
     Indication: PAIN PROPHYLAXIS
     Route: 065
  10. VESICARE [Suspect]
     Active Substance: SOLIFENACIN SUCCINATE
     Dosage: 5 MG, AS NEEDED (AD HOC)
     Route: 065
  11. BETMIGA [Suspect]
     Active Substance: MIRABEGRON
     Indication: BLADDER DISORDER
     Dosage: 50 MG, 1 TABLET TWICE DAILY
     Route: 065
     Dates: start: 2015, end: 20160802
  12. VESICARE [Suspect]
     Active Substance: SOLIFENACIN SUCCINATE
     Indication: BLADDER PAIN
     Route: 065
     Dates: start: 20160129
  13. METOPROLOL SUCCINATE. [Concomitant]
     Active Substance: METOPROLOL SUCCINATE
     Indication: PAIN PROPHYLAXIS
     Route: 065
  14. ACETYLSALICYLIC ACID [Concomitant]
     Active Substance: ASPIRIN
     Indication: ANGIOPATHY
     Route: 065
     Dates: end: 20161111

REACTIONS (20)
  - Somnolence [Unknown]
  - Contusion [Not Recovered/Not Resolved]
  - Musculoskeletal chest pain [Not Recovered/Not Resolved]
  - Blood urine present [Recovered/Resolved]
  - Overdose [Unknown]
  - Blood urine present [Recovered/Resolved]
  - Blood urine present [Recovered/Resolved]
  - Eye contusion [Unknown]
  - Fall [Unknown]
  - Device leakage [Unknown]
  - Urinary bladder haemorrhage [Recovered/Resolved]
  - Device leakage [Unknown]
  - Dementia Alzheimer^s type [Unknown]
  - Emotional distress [Unknown]
  - Confusional state [Unknown]
  - Off label use [Unknown]
  - Bladder pain [Not Recovered/Not Resolved]
  - Catheter site haemorrhage [Unknown]
  - Blood urine present [Recovered/Resolved]
  - Bladder pain [Recovered/Resolved]

NARRATIVE: CASE EVENT DATE: 2015
